FAERS Safety Report 8911591 (Version 1)
Quarter: 2012Q4

REPORT INFORMATION
  Report Type: 
  Country: JP (occurrence: JP)
  Receive Date: 20121115
  Receipt Date: 20121115
  Transmission Date: 20130627
  Serious: Yes (Other)
  Sender: FDA-Public Use
  Company Number: JP-PFIZER INC-2012282907

PATIENT
  Sex: Male

DRUGS (1)
  1. ZITHROMAC [Suspect]
     Dosage: UNK
     Route: 048
     Dates: start: 201204, end: 201204

REACTIONS (6)
  - Haematochezia [Unknown]
  - Constipation [Unknown]
  - Blood pressure increased [Unknown]
  - Heart rate increased [Unknown]
  - Dysgeusia [Unknown]
  - Hypoaesthesia [Unknown]
